FAERS Safety Report 15722904 (Version 1)
Quarter: 2018Q4

REPORT INFORMATION
  Report Type: Spontaneous
  Country: US (occurrence: US)
  Receive Date: 20181130
  Receipt Date: 20181130
  Transmission Date: 20190205
  Serious: No
  Sender: FDA-Public Use
  Company Number: None

PATIENT
  Age: 76 Year
  Sex: Female

DRUGS (3)
  1. ADCIRCA [Suspect]
     Active Substance: TADALAFIL
     Route: 048
     Dates: start: 20161010
  2. LANTUS FUROSEMIDE [Concomitant]
  3. LEITAIRIS [Concomitant]

REACTIONS (5)
  - Treatment noncompliance [None]
  - Product dose omission [None]
  - Economic problem [None]
  - Feeling jittery [None]
  - Insomnia [None]

NARRATIVE: CASE EVENT DATE: 20181129
